FAERS Safety Report 4303734-2 (Version None)
Quarter: 2004Q1

REPORT INFORMATION
  Report Type: 
  Country: None (occurrence: None)
  Receive Date: 20040225
  Receipt Date: 20040105
  Transmission Date: 20041129
  Serious: Yes (Other)
  Sender: FDA-Public Use
  Company Number: PHBS2004JP00544

PATIENT
  Age: 12 Year
  Sex: Female

DRUGS (1)
  1. CARBAMAZEPINE [Suspect]
     Indication: NEURALGIA
     Dosage: 200 MG/DAY
     Route: 048

REACTIONS (1)
  - HEARING IMPAIRED [None]
